FAERS Safety Report 13535679 (Version 1)
Quarter: 2017Q2

REPORT INFORMATION
  Report Type: Spontaneous
  Country: DE (occurrence: DE)
  Receive Date: 20170511
  Receipt Date: 20170511
  Transmission Date: 20170830
  Serious: Yes (Other)
  Sender: FDA-Public Use
  Company Number: DE-SUN PHARMACEUTICAL INDUSTRIES LTD-2017RR-140243

PATIENT
  Age: 1 Day
  Sex: Male

DRUGS (6)
  1. VIGANTOLETTEN 1000 [Concomitant]
     Indication: VITAMIN D DEFICIENCY
     Dosage: 1000 IU, QD, 0.41. GESTATIONAL WEEK
     Route: 064
     Dates: start: 20160405, end: 20170119
  2. L-THYROXIN [Concomitant]
     Active Substance: LEVOTHYROXINE SODIUM
     Indication: HYPOTHYROIDISM
     Dosage: 25 ?G, QD, 0.-41. GESTATIONAL WEEK
     Route: 064
     Dates: start: 20160405, end: 20170119
  3. MENOGON [Concomitant]
     Active Substance: MENOTROPINS
     Indication: INFERTILITY FEMALE
     Dosage: 150 I.E./D; 0.4.-1.6. GESTATIONAL WEEK
     Route: 064
     Dates: start: 20160411, end: 20160420
  4. SERTRALINE [Suspect]
     Active Substance: SERTRALINE HYDROCHLORIDE
     Indication: DEPRESSION
     Dosage: 50 MG, QD, 0.-41. GESTATIONAL WEEK
     Route: 064
     Dates: start: 20160405, end: 20170119
  5. FOLIO FORTE [Concomitant]
     Active Substance: FOLIC ACID\VITAMINS
     Indication: PROPHYLAXIS OF NEURAL TUBE DEFECT
     Dosage: 0.8 MG, DAILY, 0.-41. GESTATIONAL WEEK
     Route: 064
     Dates: start: 20160405, end: 20170119
  6. TANTUM VERDE [Concomitant]
     Active Substance: BENZYDAMINE HYDROCHLORIDE
     Indication: PHARYNGITIS
     Dosage: UNK, 32.-33. GESTATIONAL WEEK
     Route: 064

REACTIONS (1)
  - Small for dates baby [Recovered/Resolved]

NARRATIVE: CASE EVENT DATE: 20170119
